FAERS Safety Report 7599810-1 (Version None)
Quarter: 2011Q3

REPORT INFORMATION
  Report Type: 
  Country: None (occurrence: None)
  Receive Date: 20110711
  Receipt Date: 20110317
  Transmission Date: 20111222
  Serious: No
  Sender: FDA-Public Use
  Company Number: A0918686A

PATIENT
  Sex: Male

DRUGS (1)
  1. REQUIP XL [Suspect]
     Route: 048

REACTIONS (1)
  - BLOOD PROLACTIN DECREASED [None]
